FAERS Safety Report 21120427 (Version 5)
Quarter: 2023Q4

REPORT INFORMATION
  Report Type: Report from Study
  Country: JP (occurrence: JP)
  Receive Date: 20220722
  Receipt Date: 20231106
  Transmission Date: 20240110
  Serious: Yes (Hospitalization)
  Sender: FDA-Public Use
  Company Number: JP-ABBVIE-22K-087-4478450-00

PATIENT
  Age: 23 Year
  Sex: Female

DRUGS (2)
  1. SKYRIZI [Suspect]
     Active Substance: RISANKIZUMAB-RZAA
     Indication: Psoriasis
     Route: 058
     Dates: start: 20210324
  2. DESLORATADINE [Concomitant]
     Active Substance: DESLORATADINE
     Indication: Psoriasis
     Dosage: 5 MILLIGRAM
     Route: 048
     Dates: start: 20230201

REACTIONS (3)
  - COVID-19 [Recovered/Resolved]
  - Urticaria [Not Recovered/Not Resolved]
  - Arthralgia [Not Recovered/Not Resolved]

NARRATIVE: CASE EVENT DATE: 20220127
